FAERS Safety Report 21863084 (Version 1)
Quarter: 2023Q1

REPORT INFORMATION
  Report Type: Spontaneous
  Country: US (occurrence: US)
  Receive Date: 20230115
  Receipt Date: 20230115
  Transmission Date: 20230417
  Serious: No
  Sender: FDA-Public Use
  Company Number: US-JNJFOC-20230116970

PATIENT
  Sex: Female

DRUGS (1)
  1. ZYRTEC [Suspect]
     Active Substance: CETIRIZINE HYDROCHLORIDE
     Indication: Hypersensitivity
     Dosage: 1 TABLET
     Route: 048
     Dates: start: 20230104, end: 20230104

REACTIONS (7)
  - Tension headache [Recovering/Resolving]
  - Pain [Recovering/Resolving]
  - Chills [Recovering/Resolving]
  - Photosensitivity reaction [Recovering/Resolving]
  - Migraine [Recovering/Resolving]
  - Feeling abnormal [Recovering/Resolving]
  - Product use in unapproved indication [Unknown]

NARRATIVE: CASE EVENT DATE: 20230104
